FAERS Safety Report 5788542-8 (Version None)
Quarter: 2008Q2

REPORT INFORMATION
  Report Type: 
  Country: None (occurrence: None)
  Receive Date: 20080626
  Receipt Date: 20080619
  Transmission Date: 20081010
  Serious: Yes (Life-Threatening, Hospitalization)
  Sender: FDA-Public Use
  Company Number: US-JNJFOC-20080605243

PATIENT
  Age: 3 Year
  Sex: Male

DRUGS (3)
  1. CHILDREN'S IBUPROFEN [Suspect]
     Indication: MALAISE
  2. ACETAMINOPHEN [Suspect]
  3. ACETAMINOPHEN [Suspect]
     Indication: MALAISE

REACTIONS (1)
  - TOXIC EPIDERMAL NECROLYSIS [None]
